FAERS Safety Report 7762575-4 (Version None)
Quarter: 2011Q3

REPORT INFORMATION
  Report Type: 
  Country: None (occurrence: None)
  Receive Date: 20110920
  Receipt Date: 20110916
  Transmission Date: 20111222
  Serious: Yes (Hospitalization)
  Sender: FDA-Public Use
  Company Number: US-GLAXOSMITHKLINE-A0814456A

PATIENT
  Age: 50 Year
  Sex: Male
  Weight: 115 kg

DRUGS (8)
  1. BENAZEPRIL HYDROCHLORIDE [Concomitant]
  2. PREVACID [Concomitant]
  3. ACTOS [Concomitant]
  4. TOPROL-XL [Concomitant]
  5. ZETIA [Concomitant]
  6. TRICOR [Concomitant]
  7. AVANDIA [Suspect]
     Indication: DIABETES MELLITUS
     Dosage: 4MG PER DAY
     Route: 048
     Dates: start: 20020614, end: 20071115
  8. LIPITOR [Concomitant]

REACTIONS (6)
  - VENTRICULAR FIBRILLATION [None]
  - VENTRICULAR TACHYCARDIA [None]
  - CORONARY ARTERY DISEASE [None]
  - HYPERLIPIDAEMIA [None]
  - MYOCARDIAL INFARCTION [None]
  - ARTERIOSCLEROSIS [None]
